FAERS Safety Report 6408417-0 (Version None)
Quarter: 2009Q4

REPORT INFORMATION
  Report Type: 
  Country: None (occurrence: None)
  Receive Date: 20091021
  Receipt Date: 20091013
  Transmission Date: 20100525
  Serious: Yes (Other)
  Sender: FDA-Public Use
  Company Number: FR-BRISTOL-MYERS SQUIBB COMPANY-14806020

PATIENT
  Age: 57 Year
  Sex: Male

DRUGS (7)
  1. CARBIDOPA [Suspect]
     Indication: PARKINSON'S DISEASE
     Route: 065
  2. BENSERAZIDE [Suspect]
     Indication: PARKINSON'S DISEASE
  3. BROMOCRIPTINE [Suspect]
     Indication: PARKINSON'S DISEASE
  4. LEVODOPA [Suspect]
     Indication: PARKINSON'S DISEASE
  5. ENTACAPONE [Suspect]
     Indication: PARKINSON'S DISEASE
  6. TOLCAPONE [Suspect]
     Indication: PARKINSON'S DISEASE
  7. PERGOLIDE [Suspect]
     Indication: PARKINSON'S DISEASE

REACTIONS (1)
  - DOPAMINE DYSREGULATION SYNDROME [None]
